FAERS Safety Report 18780084 (Version 1)
Quarter: 2021Q1

REPORT INFORMATION
  Report Type: Spontaneous
  Country: US (occurrence: US)
  Receive Date: 20210122
  Receipt Date: 20210122
  Transmission Date: 20210419
  Serious: Yes (Other)
  Sender: FDA-Public Use
  Company Number: None

PATIENT
  Age: 26 Year
  Sex: Female
  Weight: 63.5 kg

DRUGS (4)
  1. BAMLANIVIMAB. [Suspect]
     Active Substance: BAMLANIVIMAB
     Indication: COVID-19
     Dates: start: 20210108, end: 20210108
  2. FLUOXETINE [Concomitant]
     Active Substance: FLUOXETINE HYDROCHLORIDE
  3. FLUTICIASONE ? SALMETEROL (ADVAIR) 100?50 MCG/DOSE [Concomitant]
  4. ALBUTEROL INHALER [Concomitant]
     Active Substance: ALBUTEROL

REACTIONS (5)
  - Infusion site rash [None]
  - Head discomfort [None]
  - Rash [None]
  - Hypotension [None]
  - Dyspnoea [None]

NARRATIVE: CASE EVENT DATE: 20210108
